FAERS Safety Report 9112305 (Version 1)
Quarter: 2013Q1

REPORT INFORMATION
  Report Type: Spontaneous
  Country: US (occurrence: US)
  Receive Date: 20130219
  Receipt Date: 20130219
  Transmission Date: 20140127
  Serious: No
  Sender: FDA-Public Use
  Company Number: US-BRISTOL-MYERS SQUIBB COMPANY-16368342

PATIENT
  Age: 63 Year
  Sex: Female

DRUGS (5)
  1. ORENCIA [Suspect]
     Indication: RHEUMATOID ARTHRITIS
     Dosage: JAN2012.LAST DOSE ON 14FEB2012
     Route: 058
     Dates: start: 20111213
  2. METHOTREXATE [Concomitant]
  3. PREDNISONE [Concomitant]
  4. ZOLPIDEM TARTRATE [Concomitant]
  5. FISH OIL [Concomitant]

REACTIONS (3)
  - Sinusitis [Recovered/Resolved]
  - Sensitivity of teeth [Unknown]
  - Fatigue [Unknown]
